FAERS Safety Report 7743397-7 (Version None)
Quarter: 2011Q3

REPORT INFORMATION
  Report Type: 
  Country: None (occurrence: None)
  Receive Date: 20110819
  Receipt Date: 20110502
  Transmission Date: 20111222
  Serious: No
  Sender: FDA-Public Use
  Company Number: 034048

PATIENT
  Sex: Female

DRUGS (1)
  1. LACOSAMIDE [Suspect]
     Indication: TRIGEMINAL NEURALGIA
     Dosage: DOSE STRENGTH: 100MG TABLET, DAILY, DOSE INCREASED

REACTIONS (1)
  - DRUG INEFFECTIVE [None]
